FAERS Safety Report 4621902-7 (Version None)
Quarter: 2005Q1

REPORT INFORMATION
  Report Type: 
  Country: None (occurrence: None)
  Receive Date: 20050329
  Receipt Date: 20050328
  Transmission Date: 20050727
  Serious: Yes (Hospitalization, Other)
  Sender: FDA-Public Use
  Company Number: US-GLAXOSMITHKLINE-A0551493A

PATIENT
  Age: 38 Year
  Sex: Female

DRUGS (10)
  1. EPZICOM [Suspect]
     Indication: HIV INFECTION
     Dosage: 1TAB PER DAY
     Route: 048
     Dates: start: 20050316, end: 20050318
  2. DAPSONE [Concomitant]
  3. LEXAPRO [Concomitant]
  4. KEPPRA [Concomitant]
  5. DILANTIN [Concomitant]
  6. PROTONIX [Concomitant]
  7. UNKNOWN MEDICATION [Concomitant]
  8. FERROUS SULFATE TAB [Concomitant]
  9. MAGNESIUM OXIDE [Concomitant]
  10. EFAVIRENZ [Concomitant]

REACTIONS (10)
  - ALANINE AMINOTRANSFERASE INCREASED [None]
  - ASPARTATE AMINOTRANSFERASE INCREASED [None]
  - BLOOD ALKALINE PHOSPHATASE INCREASED [None]
  - EOSINOPHILIA [None]
  - GASTROINTESTINAL DISORDER [None]
  - HYPERSENSITIVITY [None]
  - HYPOTENSION [None]
  - LIVER FUNCTION TEST ABNORMAL [None]
  - PYREXIA [None]
  - RASH [None]
